FAERS Safety Report 6327846-7 (Version None)
Quarter: 2009Q3

REPORT INFORMATION
  Report Type: 
  Country: None (occurrence: None)
  Receive Date: 20090824
  Receipt Date: 20090813
  Transmission Date: 20100115
  Serious: Yes (Hospitalization, Other)
  Sender: FDA-Public Use
  Company Number: 2007-02309

PATIENT
  Age: 60 Year
  Sex: Female
  Weight: 49 kg

DRUGS (10)
  1. VELCADE [Suspect]
     Indication: MULTIPLE MYELOMA
     Dosage: 1.60 MG, INTRAVENOUS ; 1.4 MG, INTRAVENOUS ; 1.4 MG, INTRAVENOUS
     Route: 042
     Dates: start: 20070316, end: 20070326
  2. VELCADE [Suspect]
     Indication: MULTIPLE MYELOMA
     Dosage: 1.60 MG, INTRAVENOUS ; 1.4 MG, INTRAVENOUS ; 1.4 MG, INTRAVENOUS
     Route: 042
     Dates: start: 20070410, end: 20070515
  3. VELCADE [Suspect]
     Indication: MULTIPLE MYELOMA
     Dosage: 1.60 MG, INTRAVENOUS ; 1.4 MG, INTRAVENOUS ; 1.4 MG, INTRAVENOUS
     Route: 042
     Dates: start: 20080415, end: 20090321
  4. ITRACONAZOLE [Concomitant]
  5. RISEDRONATE SODIUM [Concomitant]
  6. CALCIUM LACTATE (CALCIUM LACTATE) [Concomitant]
  7. MAGNESIUM OXIDE (MAGNESIUM OXIDE) [Concomitant]
  8. LANSOPRAZOLE [Concomitant]
  9. LOPERAMIDE HCL [Concomitant]
  10. LOXONIN (LOXOPROFEN SODIUM) [Concomitant]

REACTIONS (4)
  - ERYTHEMA MULTIFORME [None]
  - HYPOAESTHESIA [None]
  - PLATELET COUNT DECREASED [None]
  - WHITE BLOOD CELL COUNT DECREASED [None]
